FAERS Safety Report 7077211-2 (Version None)
Quarter: 2010Q4

REPORT INFORMATION
  Report Type: 
  Country: None (occurrence: None)
  Receive Date: 20101101
  Receipt Date: 20101021
  Transmission Date: 20110411
  Serious: Yes (Hospitalization)
  Sender: FDA-Public Use
  Company Number: US-BAXTER-2010BH020885

PATIENT
  Sex: Male

DRUGS (1)
  1. DIANEAL [Suspect]
     Route: 033
     Dates: start: 20090101

REACTIONS (3)
  - ASTHENIA [None]
  - CHOLECYSTITIS INFECTIVE [None]
  - MALAISE [None]
